FAERS Safety Report 10410958 (Version 2)
Quarter: 2014Q3

REPORT INFORMATION
  Report Type: Report from Study
  Country: BR (occurrence: BR)
  Receive Date: 20140826
  Receipt Date: 20140826
  Transmission Date: 20150326
  Serious: Yes (Hospitalization, Disabling, Other)
  Sender: FDA-Public Use
  Company Number: BR-ABBVIE-13P-020-1133970-00

PATIENT
  Sex: Female
  Weight: 52 kg

DRUGS (8)
  1. UNKNOWN DRUG [Concomitant]
     Active Substance: UNSPECIFIED INGREDIENT
     Indication: BLOOD PRESSURE
  2. PREDNISONE. [Concomitant]
     Active Substance: PREDNISONE
     Indication: RHEUMATOID ARTHRITIS
     Route: 048
     Dates: start: 1975
  3. HUMIRA [Suspect]
     Active Substance: ADALIMUMAB
     Indication: RHEUMATOID ARTHRITIS
     Route: 058
     Dates: start: 2011, end: 2012
  4. VICOG [Concomitant]
     Active Substance: VINPOCETINE
     Indication: SLEEP DISORDER THERAPY
     Route: 048
     Dates: start: 2008
  5. COMPOUNDED DRUG [Concomitant]
     Indication: PRODUCT USED FOR UNKNOWN INDICATION
  6. OSCAL D [Concomitant]
     Active Substance: CALCIUM CARBONATE\CHOLECALCIFEROL
     Indication: BONE DISORDER
     Route: 048
     Dates: start: 2013
  7. ATENOLOL. [Concomitant]
     Active Substance: ATENOLOL
     Indication: HYPERTENSION
     Route: 048
     Dates: start: 2011
  8. UNKNOWN DRUG [Concomitant]
     Active Substance: UNSPECIFIED INGREDIENT
     Indication: CARDIAC DISORDER

REACTIONS (19)
  - Abdominal hernia [Not Recovered/Not Resolved]
  - Femur fracture [Recovered/Resolved]
  - Eye disorder [Recovering/Resolving]
  - Hernia pain [Not Recovered/Not Resolved]
  - Pyrexia [Recovered/Resolved]
  - Intervertebral disc protrusion [Not Recovered/Not Resolved]
  - Colitis [Recovered/Resolved]
  - Diverticulitis [Recovered/Resolved]
  - Pain in extremity [Recovering/Resolving]
  - Viral infection [Unknown]
  - Abdominal distension [Recovered/Resolved]
  - Flatulence [Recovered/Resolved]
  - Gait disturbance [Not Recovered/Not Resolved]
  - Enterovesical fistula [Recovered/Resolved]
  - Muscular weakness [Recovered/Resolved]
  - Osteoporosis [Not Recovered/Not Resolved]
  - Spinal pain [Not Recovered/Not Resolved]
  - Faecaluria [Recovered/Resolved]
  - Pruritus [Not Recovered/Not Resolved]

NARRATIVE: CASE EVENT DATE: 2012
